FAERS Safety Report 9100170 (Version 5)
Quarter: 2014Q2

REPORT INFORMATION
  Report Type: Spontaneous
  Country: US (occurrence: US)
  Receive Date: 20130215
  Receipt Date: 20140424
  Transmission Date: 20141212
  Serious: Yes (Death, Hospitalization, Other)
  Sender: FDA-Public Use
  Company Number: US-TEVA-386640USA

PATIENT
  Age: 57 Year
  Sex: 0

DRUGS (1)
  1. BENDAMUSTINE [Suspect]
     Indication: CHRONIC LYMPHOCYTIC LEUKAEMIA
     Dosage: 80 MILLIGRAM DAILY;
     Route: 042
     Dates: start: 20110523, end: 20110524

REACTIONS (2)
  - Chronic lymphocytic leukaemia [Fatal]
  - Renal failure [Recovered/Resolved]
